FAERS Safety Report 4988013-2 (Version None)
Quarter: 2006Q2

REPORT INFORMATION
  Report Type: 
  Country: None (occurrence: None)
  Receive Date: 20060424
  Receipt Date: 20060413
  Transmission Date: 20061013
  Serious: Yes (Death, Hospitalization)
  Sender: FDA-Public Use
  Company Number: 2006-BP-04273RO

PATIENT
  Age: 42 Year
  Sex: Male

DRUGS (3)
  1. PREDNISONE TAB [Suspect]
     Indication: PROPHYLAXIS AGAINST TRANSPLANT REJECTION
     Dosage: 16 MG/DAY
  2. TACROLIMUS                    (TACROLIMUS) [Suspect]
     Indication: PROPHYLAXIS AGAINST TRANSPLANT REJECTION
     Dosage: 24 MG/DAY
  3. MYCOPHENOLATE                    (MYCOPHENOLATE  MOFETIL) [Suspect]
     Indication: PROPHYLAXIS AGAINST TRANSPLANT REJECTION
     Dosage: 2 G/DAY

REACTIONS (17)
  - ABDOMINAL PAIN [None]
  - ANAEMIA [None]
  - BIOPSY LYMPH GLAND ABNORMAL [None]
  - COMPUTERISED TOMOGRAM ABNORMAL [None]
  - DUODENITIS [None]
  - GASTRIC DISORDER [None]
  - GASTRIC MUCOSAL LESION [None]
  - GASTRITIS [None]
  - GASTROINTESTINAL HAEMORRHAGE [None]
  - HEPATIC LESION [None]
  - KAPOSI'S SARCOMA [None]
  - NAUSEA [None]
  - PALLOR [None]
  - PITTING OEDEMA [None]
  - RENAL FAILURE [None]
  - SKIN LESION [None]
  - WEIGHT DECREASED [None]
